FAERS Safety Report 7422949-8 (Version None)
Quarter: 2011Q2

REPORT INFORMATION
  Report Type: 
  Country: None (occurrence: None)
  Receive Date: 20110419
  Receipt Date: 20110408
  Transmission Date: 20111010
  Serious: Yes (Hospitalization, Other)
  Sender: FDA-Public Use
  Company Number: US-JNJFOC-20110404353

PATIENT
  Sex: Female

DRUGS (9)
  1. DURAGESIC [Suspect]
     Route: 062
  2. SOMA [Concomitant]
     Indication: MUSCLE SPASMS
     Route: 048
  3. DURAGESIC [Suspect]
     Route: 062
  4. ZOLOFT [Concomitant]
     Indication: DEPRESSION
     Route: 048
  5. LORTAB [Concomitant]
     Indication: BREAKTHROUGH PAIN
     Route: 048
  6. ATIVAN [Concomitant]
     Indication: PANIC ATTACK
     Route: 048
  7. DURAGESIC [Suspect]
     Indication: PAIN
     Route: 062
  8. FENTANYL-100 [Suspect]
     Indication: PAIN
     Route: 062
  9. DARVOCET [Concomitant]
     Indication: BREAKTHROUGH PAIN
     Route: 048

REACTIONS (15)
  - PANIC ATTACK [None]
  - PRODUCT QUALITY ISSUE [None]
  - DRUG EFFECT INCREASED [None]
  - FIBROMYALGIA [None]
  - DRUG ADMINISTERED AT INAPPROPRIATE SITE [None]
  - WRONG TECHNIQUE IN DRUG USAGE PROCESS [None]
  - PROCEDURAL PAIN [None]
  - ARTHRALGIA [None]
  - PAIN IN EXTREMITY [None]
  - PRODUCT ADHESION ISSUE [None]
  - BACK PAIN [None]
  - WEIGHT FLUCTUATION [None]
  - INTERVERTEBRAL DISC DEGENERATION [None]
  - FINGER DEFORMITY [None]
  - INCORRECT DOSE ADMINISTERED BY DEVICE [None]
